FAERS Safety Report 20825156 (Version 1)
Quarter: 2022Q2

REPORT INFORMATION
  Report Type: Spontaneous
  Country: HR (occurrence: HR)
  Receive Date: 20220513
  Receipt Date: 20220513
  Transmission Date: 20220721
  Serious: Yes (Other)
  Sender: FDA-Public Use
  Company Number: HR-SA-2022SA164169

PATIENT
  Age: 39 Year
  Sex: Female

DRUGS (5)
  1. ALEMTUZUMAB [Suspect]
     Active Substance: ALEMTUZUMAB
     Indication: Relapsing-remitting multiple sclerosis
     Dosage: FIVE DAILY 12-MG INTRAVENOUS INFUSIONS IN THE FIRST YEAR OF TREATMENT
     Route: 041
     Dates: start: 201108, end: 201108
  2. ALEMTUZUMAB [Suspect]
     Active Substance: ALEMTUZUMAB
     Dosage: THREE DAILY 12-MG INFUSIONS 12 MONTHS LATER
     Route: 041
     Dates: start: 201208, end: 201208
  3. ALEMTUZUMAB [Suspect]
     Active Substance: ALEMTUZUMAB
     Dosage: THREE DAILY 12-MG INFUSIONS 12 MONTHS LATER
     Route: 041
     Dates: start: 201603, end: 201603
  4. CLADRIBINE [Suspect]
     Active Substance: CLADRIBINE
     Indication: Relapsing-remitting multiple sclerosis
     Dosage: 3.5 MG/KG BODY WEIGHT, ADMINISTERED IN TWO YEARLY TREATMENT COURSES (1.75 MG/KG PER TREATMENT COURSE
     Route: 048
     Dates: start: 201909, end: 201909
  5. CLADRIBINE [Suspect]
     Active Substance: CLADRIBINE
     Dosage: 3.5 MG/KG BODY WEIGHT, ADMINISTERED IN TWO YEARLY TREATMENT COURSES (1.75 MG/KG PER TREATMENT COURSE
     Route: 048
     Dates: start: 202010, end: 202010

REACTIONS (1)
  - Lymphopenia [Recovered/Resolved]

NARRATIVE: CASE EVENT DATE: 20191101
